FAERS Safety Report 18267203 (Version 1)
Quarter: 2020Q3

REPORT INFORMATION
  Report Type: Spontaneous
  Country: US (occurrence: US)
  Receive Date: 20200914
  Receipt Date: 20200914
  Transmission Date: 20201103
  Serious: No
  Sender: FDA-Public Use
  Company Number: None

PATIENT
  Age: 47 Year
  Sex: Female
  Weight: 50.85 kg

DRUGS (1)
  1. NATURE?THROID [Suspect]
     Active Substance: THYROID, PORCINE
     Indication: HYPOTHYROIDISM
     Dosage: ;?
     Route: 048
     Dates: start: 20200905, end: 20200914

REACTIONS (9)
  - Recalled product [None]
  - Temperature intolerance [None]
  - Hot flush [None]
  - Eye disorder [None]
  - Product measured potency issue [None]
  - Asthenopia [None]
  - Visual impairment [None]
  - Recalled product administered [None]
  - Vitreous floaters [None]

NARRATIVE: CASE EVENT DATE: 20200908
